FAERS Safety Report 5936667-6 (Version None)
Quarter: 2008Q4

REPORT INFORMATION
  Report Type: 
  Country: None (occurrence: None)
  Receive Date: 20081021
  Receipt Date: 20080305
  Transmission Date: 20090506
  Serious: No
  Sender: FDA-Public Use
  Company Number: HQWYE627504APR06

PATIENT
  Sex: Female

DRUGS (2)
  1. PREMARIN [Suspect]
     Indication: VULVOVAGINAL DRYNESS
     Dosage: 0.625 MG 1X PER 1 DAY, ORAL
     Route: 048
  2. PREMARIN [Suspect]
     Dates: start: 20060301, end: 20060301

REACTIONS (3)
  - APPLICATION SITE IRRITATION [None]
  - LOSS OF CONTROL OF LEGS [None]
  - PRURITUS [None]
